FAERS Safety Report 7368054-0 (Version None)
Quarter: 2011Q1

REPORT INFORMATION
  Report Type: 
  Country: None (occurrence: None)
  Receive Date: 20110323
  Receipt Date: 20110315
  Transmission Date: 20110831
  Serious: No
  Sender: FDA-Public Use
  Company Number: US-BIOGENIDEC-2011BI004732

PATIENT
  Age: 29 Year
  Sex: Female
  Weight: 57 kg

DRUGS (7)
  1. NEURONTIN [Concomitant]
  2. VESICARE [Concomitant]
     Indication: BLADDER DISORDER
  3. LASIX [Concomitant]
     Indication: SWELLING
  4. WELLBUTRIN XL [Concomitant]
  5. CELEXA [Concomitant]
  6. TYSABRI [Suspect]
     Indication: MULTIPLE SCLEROSIS
     Route: 042
     Dates: start: 20100125
  7. SPRINTEC [Concomitant]
     Indication: CONTRACEPTION

REACTIONS (1)
  - PAPILLOMA VIRAL INFECTION [None]
